FAERS Safety Report 7756265-1 (Version None)
Quarter: 2011Q3

REPORT INFORMATION
  Report Type: 
  Country: None (occurrence: None)
  Receive Date: 20110916
  Receipt Date: 20110906
  Transmission Date: 20111222
  Serious: Yes (Hospitalization, Other)
  Sender: FDA-Public Use
  Company Number: US-BAYER-201041869NA

PATIENT
  Age: 23 Year
  Sex: Female
  Weight: 64.853 kg

DRUGS (4)
  1. MOTRIN [Concomitant]
  2. YAZ [Suspect]
     Dosage: UNK UNK, UNK
     Route: 048
     Dates: start: 20080801, end: 20090201
  3. PRENATAL VITAMINS [Concomitant]
     Route: 048
  4. SEPTRA [Concomitant]

REACTIONS (5)
  - GALLBLADDER NON-FUNCTIONING [None]
  - ABDOMINAL PAIN [None]
  - CHOLECYSTITIS ACUTE [None]
  - CHOLELITHIASIS [None]
  - ORGAN FAILURE [None]
